FAERS Safety Report 11326275 (Version 2)
Quarter: 2015Q3

REPORT INFORMATION
  Report Type: Spontaneous
  Country: DE (occurrence: None)
  Receive Date: 20150729
  Receipt Date: 20150807
  Transmission Date: 20151125
  Serious: Yes (Other)
  Sender: FDA-Public Use
  Company Number: DE-H14001-15-01361

PATIENT
  Age: 10 Year
  Sex: Male
  Weight: 41.7 kg

DRUGS (2)
  1. CLINDAMYCIN [Suspect]
     Active Substance: CLINDAMYCIN\CLINDAMYCIN PHOSPHATE
     Indication: OSTEOMYELITIS
     Route: 042
     Dates: start: 20140424, end: 20150512
  2. CEFUROXIM (CEFUROXIME SODIUM) [Concomitant]

REACTIONS (2)
  - Leukopenia [None]
  - Nasopharyngitis [None]

NARRATIVE: CASE EVENT DATE: 20150509
